FAERS Safety Report 5083882-2 (Version None)
Quarter: 2006Q3

REPORT INFORMATION
  Report Type: 
  Country: None (occurrence: None)
  Receive Date: 20060727
  Receipt Date: 20060603
  Transmission Date: 20061208
  Serious: Yes (Other)
  Sender: FDA-Public Use
  Company Number: 2006054919

PATIENT
  Sex: Female

DRUGS (9)
  1. LYRICA [Suspect]
     Indication: NEUROPATHY
     Dosage: 150 MG
  2. NEURONTIN [Suspect]
     Indication: DRUG USE FOR UNKNOWN INDICATION
  3. GLUCOTROL [Suspect]
     Indication: DRUG USE FOR UNKNOWN INDICATION
     Dates: start: 20050422
  4. CYMBALTA [Suspect]
     Indication: DRUG USE FOR UNKNOWN INDICATION
  5. DARVOCET [Concomitant]
  6. GLUCOPHAGE [Concomitant]
  7. NIACIN [Concomitant]
  8. ZETIA [Concomitant]
  9. ASPIRIN [Concomitant]

REACTIONS (6)
  - ADVERSE EVENT [None]
  - BLOOD GLUCOSE INCREASED [None]
  - FEELING ABNORMAL [None]
  - GASTROENTERITIS VIRAL [None]
  - NEUROPATHY [None]
  - PRURITUS [None]
